FAERS Safety Report 11608573 (Version 1)
Quarter: 2015Q3

REPORT INFORMATION
  Report Type: Spontaneous
  Country: US (occurrence: US)
  Receive Date: 20150916
  Receipt Date: 20150916
  Transmission Date: 20151125
  Serious: No
  Sender: FDA-Public Use
  Company Number: US-ELI_LILLY_AND_COMPANY-US201311005536

PATIENT
  Sex: Female

DRUGS (3)
  1. METFORMIN [Concomitant]
     Active Substance: METFORMIN HYDROCHLORIDE
  2. LANTUS [Concomitant]
     Active Substance: INSULIN GLARGINE
     Dosage: 70 U, EACH EVENING
  3. HUMALOG [Suspect]
     Active Substance: INSULIN LISPRO
     Indication: DIABETES MELLITUS
     Dosage: 1 DF, TID
     Dates: start: 201310

REACTIONS (13)
  - Hyperhidrosis [Unknown]
  - Headache [Unknown]
  - Malaise [Unknown]
  - Accidental exposure to product [Unknown]
  - Pain [Unknown]
  - Nervousness [Unknown]
  - Insomnia [Unknown]
  - Vomiting [Unknown]
  - Blood glucose increased [Unknown]
  - Drug dose omission [Unknown]
  - Tremor [Unknown]
  - Blood glucose decreased [Unknown]
  - Migraine [Unknown]
